FAERS Safety Report 20779093 (Version 2)
Quarter: 2022Q2

REPORT INFORMATION
  Report Type: Spontaneous
  Country: US (occurrence: US)
  Receive Date: 20220503
  Receipt Date: 20220604
  Transmission Date: 20220721
  Serious: No
  Sender: FDA-Public Use
  Company Number: US-SA-SAC20220428000592

PATIENT
  Age: 57 Year
  Sex: Female

DRUGS (1)
  1. DUPIXENT [Suspect]
     Active Substance: DUPILUMAB
     Indication: Asthma
     Dosage: 300 MG, QOW
     Route: 058
     Dates: start: 20200619

REACTIONS (7)
  - Urticaria [Recovering/Resolving]
  - Erythema [Unknown]
  - Pain [Recovered/Resolved]
  - Infection [Unknown]
  - Product use issue [Unknown]
  - Pain in extremity [Recovered/Resolved]
  - Oral pain [Recovered/Resolved]
